FAERS Safety Report 23511318 (Version 1)
Quarter: 2024Q1

REPORT INFORMATION
  Report Type: Spontaneous
  Country: FR (occurrence: FR)
  Receive Date: 20240212
  Receipt Date: 20240212
  Transmission Date: 20240410
  Serious: Yes (Hospitalization)
  Sender: FDA-Public Use
  Company Number: None

PATIENT
  Age: 80 Year
  Sex: Male
  Weight: 66 kg

DRUGS (15)
  1. METFORMIN [Suspect]
     Active Substance: METFORMIN HYDROCHLORIDE
     Indication: Type 2 diabetes mellitus
     Dosage: 1 MORNING, 1 NOON AND 1 EVENING
     Route: 048
     Dates: end: 20231206
  2. GABAPENTIN [Concomitant]
     Active Substance: GABAPENTIN
     Indication: Product used for unknown indication
     Dosage: 1 AT MORNING 1 AT NOON AND 1 AT EVENING,
  3. LEVOFLOXACIN [Concomitant]
     Active Substance: LEVOFLOXACIN
     Indication: Product used for unknown indication
     Dosage: FOR 3 WEEKS
     Route: 048
     Dates: start: 20231228, end: 20240106
  4. ACETAMINOPHEN [Concomitant]
     Active Substance: ACETAMINOPHEN
     Indication: Product used for unknown indication
     Dosage: 1G ORAL 1X3/D IF NEEDED.
     Route: 048
  5. DOXYCYCLINE [Concomitant]
     Active Substance: DOXYCYCLINE
     Indication: Product used for unknown indication
     Dosage: FOR 3 WEEKS
     Dates: start: 20231228
  6. TOPIRAMATE [Concomitant]
     Active Substance: TOPIRAMATE
     Indication: Product used for unknown indication
     Dosage: 1 IN THE EVENING
     Route: 048
  7. AMLODIPINE [Concomitant]
     Active Substance: AMLODIPINE BESYLATE
     Indication: Product used for unknown indication
     Dosage: 1 AT MORNING
     Route: 048
  8. ATORVASTATIN [Concomitant]
     Active Substance: ATORVASTATIN
     Indication: Product used for unknown indication
     Dosage: 1 AT EVENING
     Route: 048
  9. NEBIVOLOL [Concomitant]
     Active Substance: NEBIVOLOL
     Indication: Product used for unknown indication
     Dosage: 1 MORNING
     Route: 048
  10. EZETIMIBE [Concomitant]
     Active Substance: EZETIMIBE
     Indication: Product used for unknown indication
     Dosage: 1 AT EVENING
     Route: 048
  11. ALLOPURINOL [Concomitant]
     Active Substance: ALLOPURINOL
     Indication: Product used for unknown indication
     Dosage: 1 AT EVENING
     Route: 048
  12. HERBALS\SAW PALMETTO [Concomitant]
     Active Substance: HERBALS\SAW PALMETTO
     Indication: Product used for unknown indication
     Dosage: 1 MORNING, 1 EVENING
     Route: 048
  13. VILDAGLIPTIN [Concomitant]
     Active Substance: VILDAGLIPTIN
     Indication: Product used for unknown indication
     Dosage: 1 AT MORNING AND 1 AT EVENING
     Route: 048
  14. FLUINDIONE [Concomitant]
     Active Substance: FLUINDIONE
     Indication: Product used for unknown indication
     Dosage: 1 AT EVENING
     Route: 048
  15. CALCIPARINE [Concomitant]
     Active Substance: HEPARIN CALCIUM
     Indication: Product used for unknown indication

REACTIONS (2)
  - Toxicity to various agents [Not Recovered/Not Resolved]
  - Lactic acidosis [Not Recovered/Not Resolved]

NARRATIVE: CASE EVENT DATE: 20240106
